FAERS Safety Report 13932482 (Version 5)
Quarter: 2018Q1

REPORT INFORMATION
  Report Type: Report from Study
  Country: CZ (occurrence: CZ)
  Receive Date: 20170904
  Receipt Date: 20180108
  Transmission Date: 20180508
  Serious: Yes (Hospitalization, Other)
  Sender: FDA-Public Use
  Company Number: CZ-BRISTOL-MYERS SQUIBB COMPANY-BMS-2017-078868

PATIENT
  Age: 58 Year

DRUGS (1)
  1. METFORMIN HYDROCHLORIDE. [Suspect]
     Active Substance: METFORMIN HYDROCHLORIDE
     Indication: PRODUCT USED FOR UNKNOWN INDICATION
     Dosage: 1 DF, UNK
     Route: 048

REACTIONS (20)
  - Toxicity to various agents [Unknown]
  - Blood potassium increased [Unknown]
  - Hypovolaemia [Unknown]
  - Hypocapnia [Unknown]
  - Acute kidney injury [Recovering/Resolving]
  - Blood creatinine increased [Recovering/Resolving]
  - Anion gap increased [Unknown]
  - Blood magnesium increased [Unknown]
  - Base excess decreased [Unknown]
  - Creatinine renal clearance decreased [Unknown]
  - PCO2 decreased [Unknown]
  - PO2 increased [Unknown]
  - Blood pH decreased [Unknown]
  - Blood lactic acid increased [Unknown]
  - Blood bicarbonate decreased [Unknown]
  - Gastrointestinal disorder [Unknown]
  - Blood phosphorus increased [Unknown]
  - Lactic acidosis [Unknown]
  - Metabolic acidosis [Unknown]
  - Blood chloride decreased [Unknown]

NARRATIVE: CASE EVENT DATE: 2016
